FAERS Safety Report 5877942-3 (Version None)
Quarter: 2008Q3

REPORT INFORMATION
  Report Type: 
  Country: None (occurrence: None)
  Receive Date: 20080911
  Receipt Date: 20080908
  Transmission Date: 20090109
  Serious: Yes (Hospitalization)
  Sender: FDA-Public Use
  Company Number: B0535945A

PATIENT
  Age: 59 Year
  Sex: Male

DRUGS (10)
  1. SERETIDE [Suspect]
     Indication: ASTHMA
     Dosage: 2PUFF PER DAY
     Route: 055
     Dates: start: 20080101
  2. VENTOLIN [Suspect]
     Indication: ASTHMA
     Dosage: 100MCG AS REQUIRED
     Route: 055
  3. AMITRIPTYLINE HCL [Suspect]
     Indication: RESTLESSNESS
     Route: 065
  4. ASPIRIN [Suspect]
     Indication: DRUG USE FOR UNKNOWN INDICATION
     Dosage: 75MG PER DAY
     Route: 065
  5. ATROVENT [Suspect]
     Indication: ASTHMA
     Dosage: 2PUFF TWICE PER DAY
  6. DILTIAZEM HCL [Suspect]
     Indication: HYPERTENSION
     Route: 065
  7. ENALAPRIL MALEATE [Suspect]
     Indication: HYPERTENSION
     Route: 065
  8. FRUSEMIDE [Suspect]
     Route: 065
  9. SIMVASTATIN [Suspect]
     Indication: HYPERCHOLESTEROLAEMIA
     Route: 065
  10. ZOPICLONE [Suspect]
     Indication: INSOMNIA
     Route: 065

REACTIONS (1)
  - GASTROENTERITIS [None]
